FAERS Safety Report 17002381 (Version 1)
Quarter: 2019Q4

REPORT INFORMATION
  Report Type: Spontaneous
  Country: US (occurrence: US)
  Receive Date: 20191107
  Receipt Date: 20191107
  Transmission Date: 20200122
  Serious: No
  Sender: FDA-Public Use
  Company Number: US-JNJFOC-20191047553

PATIENT
  Sex: Female
  Weight: 65.83 kg

DRUGS (1)
  1. TYLENOL [Suspect]
     Active Substance: ACETAMINOPHEN
     Indication: PYREXIA
     Dosage: 1 TABLET ONE OR MAYBE THREE TIMES A DAY
     Route: 048

REACTIONS (2)
  - Incorrect dose administered [Unknown]
  - Malaise [Recovered/Resolved]
